FAERS Safety Report 7433157-9 (Version None)
Quarter: 2011Q2

REPORT INFORMATION
  Report Type: 
  Country: None (occurrence: None)
  Receive Date: 20110415
  Receipt Date: 20110411
  Transmission Date: 20111010
  Serious: Yes (Other)
  Sender: FDA-Public Use
  Company Number: JHP201100098

PATIENT
  Age: 37 Year
  Sex: Male

DRUGS (5)
  1. VANCOMYCIN [Concomitant]
  2. CIPROFLOXACIN (CIPROFLOXACIN HYDROCHLORIDE) [Concomitant]
  3. MEROPENEM [Concomitant]
  4. COLY-MYCIN M [Suspect]
     Indication: ACINETOBACTER INFECTION
     Dosage: , INTRAVENOUS, VIA LD CATHETER (5 MG OVER 1 HOUR, EVERY 12 HOURS), INTRATHECAL
     Route: 042
  5. RIFAMPIN (RIFAMPICIN) [Concomitant]

REACTIONS (1)
  - CAUDA EQUINA SYNDROME [None]
